FAERS Safety Report 6414740-6 (Version None)
Quarter: 2009Q4

REPORT INFORMATION
  Report Type: 
  Country: None (occurrence: None)
  Receive Date: 20091026
  Receipt Date: 20091026
  Transmission Date: 20100525
  Serious: Yes (Other)
  Sender: FDA-Public Use
  Company Number: None

PATIENT
  Age: 23 Year
  Sex: Female
  Weight: 72.5755 kg

DRUGS (1)
  1. CLEAN+ CLEAR ACNE SPOT TREATMENT JOHNSON + JOHNSON [Suspect]
     Indication: ACNE
     Dosage: 2% SALICYLIC ACID NIGHTLY EPIDURAL
     Route: 008
     Dates: start: 20091021, end: 20091021

REACTIONS (4)
  - DRUG EXPOSURE DURING PREGNANCY [None]
  - EYE SWELLING [None]
  - RASH [None]
  - URTICARIA [None]
